FAERS Safety Report 22324211 (Version 1)
Quarter: 2023Q2

REPORT INFORMATION
  Report Type: Spontaneous
  Country: US (occurrence: None)
  Receive Date: 20230513
  Receipt Date: 20230513
  Transmission Date: 20230722
  Serious: No
  Sender: FDA-Public Use
  Company Number: None

PATIENT
  Age: 41 Year
  Sex: Female
  Weight: 76.5 kg

DRUGS (7)
  1. LAGEVRIO [Suspect]
     Active Substance: MOLNUPIRAVIR
     Indication: COVID-19 treatment
     Dosage: FREQUENCY : EVERY 12 HOURS;?
     Route: 048
     Dates: start: 20230510, end: 20230512
  2. SYNTHROID [Concomitant]
     Active Substance: LEVOTHYROXINE SODIUM
  3. PANTOPRAZOLE [Concomitant]
     Active Substance: PANTOPRAZOLE
  4. BUPROPION [Concomitant]
     Active Substance: BUPROPION
  5. MUCINEX [Concomitant]
     Active Substance: GUAIFENESIN
  6. SUDAFED [Concomitant]
     Active Substance: PSEUDOEPHEDRINE HYDROCHLORIDE
  7. Tylonol [Concomitant]

REACTIONS (7)
  - Adverse drug reaction [None]
  - Feeling hot [None]
  - Paraesthesia [None]
  - Hyperaesthesia [None]
  - Electric shock sensation [None]
  - Paraesthesia oral [None]
  - Lip swelling [None]

NARRATIVE: CASE EVENT DATE: 20230512
